FAERS Safety Report 21143441 (Version 1)
Quarter: 2022Q3

REPORT INFORMATION
  Report Type: Spontaneous
  Country: US (occurrence: US)
  Receive Date: 20220728
  Receipt Date: 20220728
  Transmission Date: 20221027
  Serious: Yes (Other)
  Sender: FDA-Public Use
  Company Number: US-SA-SAC20220726001072

PATIENT
  Age: 46 Year
  Sex: Male

DRUGS (1)
  1. ZANTAC [Suspect]
     Active Substance: RANITIDINE HYDROCHLORIDE
     Indication: Gastric ulcer
     Dosage: DOSE: UNKNOWN AT THIS TIME, QD
     Dates: start: 198401, end: 199812

REACTIONS (1)
  - Salivary gland cancer stage II [Unknown]

NARRATIVE: CASE EVENT DATE: 20161201
